FAERS Safety Report 12356725 (Version 5)
Quarter: 2016Q4

REPORT INFORMATION
  Report Type: Spontaneous
  Country: BR (occurrence: BR)
  Receive Date: 20160511
  Receipt Date: 20161017
  Transmission Date: 20170207
  Serious: Yes (Hospitalization, Disabling, Other)
  Sender: FDA-Public Use
  Company Number: BR-GLAXOSMITHKLINE-BR2015GSK183745

PATIENT
  Sex: Male
  Weight: 68 kg

DRUGS (4)
  1. BENLYSTA [Suspect]
     Active Substance: BELIMUMAB
     Indication: SYSTEMIC LUPUS ERYTHEMATOSUS
     Dosage: UNK
     Dates: start: 20150209
  2. LOSARTAN. [Concomitant]
     Active Substance: LOSARTAN
     Indication: PRODUCT USED FOR UNKNOWN INDICATION
     Dosage: UNK
  3. PREDNISONE. [Concomitant]
     Active Substance: PREDNISONE
     Indication: PRODUCT USED FOR UNKNOWN INDICATION
     Dosage: UNK
  4. PURAN [Concomitant]
     Active Substance: LEVOTHYROXINE SODIUM
     Indication: PRODUCT USED FOR UNKNOWN INDICATION
     Dosage: UNK

REACTIONS (13)
  - Respiratory disorder [Unknown]
  - Skin discolouration [Unknown]
  - Pyrexia [Unknown]
  - Drug ineffective [Unknown]
  - Cardiac disorder [Unknown]
  - Lung disorder [Unknown]
  - Finger amputation [Recovering/Resolving]
  - Dysphonia [Unknown]
  - Skin odour abnormal [Unknown]
  - Dyspnoea [Unknown]
  - Scleroderma [Unknown]
  - Peripheral swelling [Unknown]
  - Poor peripheral circulation [Unknown]
